FAERS Safety Report 14777237 (Version 3)
Quarter: 2019Q1

REPORT INFORMATION
  Report Type: Spontaneous
  Country: ES (occurrence: ES)
  Receive Date: 20180419
  Receipt Date: 20190111
  Transmission Date: 20190417
  Serious: Yes (Death, Hospitalization, Other)
  Sender: FDA-Public Use
  Company Number: ES-B.I. PHARMACEUTICALS,INC./RIDGEFIELD-2018-12-001364

PATIENT
  Age: 62 Year
  Sex: Male

DRUGS (20)
  1. SPIRIVA [Suspect]
     Active Substance: TIOTROPIUM BROMIDE MONOHYDRATE
     Indication: CHRONIC OBSTRUCTIVE PULMONARY DISEASE
     Dosage: 2.5 UG, QD
     Route: 065
  2. CLONAZEPAM. [Interacting]
     Active Substance: CLONAZEPAM
     Indication: EPILEPSY
     Dosage: .5 MG,Q6H
     Route: 065
  3. LORATADINE. [Interacting]
     Active Substance: LORATADINE
     Dosage: 10 MG,TOTAL; IN TOTAL
     Route: 048
  4. FLUTICASONE W/SALMETEROL [Interacting]
     Active Substance: FLUTICASONE PROPIONATE\SALMETEROL XINAFOATE
     Indication: ASTHMA
     Dosage: 1 DF, BID
     Route: 048
  5. QUETIAPINE FUMARATE. [Interacting]
     Active Substance: QUETIAPINE FUMARATE
     Dosage: 3600 MG, QD
  6. QUETIAPINE FUMARATE. [Interacting]
     Active Substance: QUETIAPINE FUMARATE
     Dosage: 1200 MG,QD
     Route: 065
  7. CLONAZEPAM. [Interacting]
     Active Substance: CLONAZEPAM
     Dosage: 8 MG, QD
     Route: 065
  8. FLUTICASONE W/SALMETEROL [Interacting]
     Active Substance: FLUTICASONE PROPIONATE\SALMETEROL XINAFOATE
     Dosage: 4 DF,QD
     Route: 055
  9. SPIRIVA [Suspect]
     Active Substance: TIOTROPIUM BROMIDE MONOHYDRATE
     Dosage: 5 UG,QD,2 PUFFS
     Route: 065
  10. METFORMIN HYDROCHLORIDE. [Suspect]
     Active Substance: METFORMIN HYDROCHLORIDE
     Indication: TYPE 2 DIABETES MELLITUS
     Dosage: 3400 MG, QD
     Route: 048
  11. LEVOTHYROXINE SODIUM. [Interacting]
     Active Substance: LEVOTHYROXINE SODIUM
     Dosage: 450 UNK
     Route: 065
  12. QUETIAPINE FUMARATE. [Interacting]
     Active Substance: QUETIAPINE FUMARATE
     Indication: SCHIZOPHRENIA
     Dosage: UNK MG
     Route: 065
  13. VALPROIC ACID. [Interacting]
     Active Substance: VALPROIC ACID
     Indication: EPILEPSY
     Dosage: 4500 MG, QD
     Route: 065
  14. HALOPERIDOL. [Interacting]
     Active Substance: HALOPERIDOL
     Indication: NEUROLEPTIC MALIGNANT SYNDROME
     Dosage: 45 MG, QD
     Route: 065
  15. HALOPERIDOL. [Interacting]
     Active Substance: HALOPERIDOL
     Indication: PSYCHOTIC DISORDER
     Dosage: 5 MG, TID
     Route: 065
  16. LEVOTHYROXINE SODIUM. [Interacting]
     Active Substance: LEVOTHYROXINE SODIUM
     Indication: HYPOTHYROIDISM
     Dosage: 150 UG,QD
     Route: 065
  17. LORATADINE. [Interacting]
     Active Substance: LORATADINE
     Indication: RHINITIS ALLERGIC
     Dosage: 10 MG,QD
     Route: 048
  18. QUETIAPINE FUMARATE. [Interacting]
     Active Substance: QUETIAPINE FUMARATE
     Indication: MAJOR DEPRESSION
     Dosage: 400 MG,TID, CHRONIC
     Route: 065
  19. VALPROIC ACID. [Interacting]
     Active Substance: VALPROIC ACID
     Indication: MANIA
     Dosage: 500 MG,TID
  20. METFORMIN HYDROCHLORIDE. [Suspect]
     Active Substance: METFORMIN HYDROCHLORIDE
     Dosage: 850 MG,BID
     Route: 048

REACTIONS (11)
  - Off label use [Fatal]
  - Cardiac failure [Fatal]
  - Prescribed overdose [Fatal]
  - Hypothyroidism [Unknown]
  - Type 2 diabetes mellitus [Unknown]
  - Drug interaction [Fatal]
  - Ventricular fibrillation [Fatal]
  - Hyperprolactinaemia [Fatal]
  - Coma [Fatal]
  - Pruritus [Unknown]
  - Loss of consciousness [Not Recovered/Not Resolved]
